FAERS Safety Report 21137177 (Version 3)
Quarter: 2022Q4

REPORT INFORMATION
  Report Type: Spontaneous
  Country: US (occurrence: US)
  Receive Date: 20220727
  Receipt Date: 20221104
  Transmission Date: 20230112
  Serious: Yes (Hospitalization, Other)
  Sender: FDA-Public Use
  Company Number: US-LUPIN PHARMACEUTICALS INC.-2022-09785

PATIENT
  Age: 76 Year
  Sex: Male

DRUGS (16)
  1. OXYCODONE [Suspect]
     Active Substance: OXYCODONE
     Indication: Analgesic therapy
     Dosage: 10 MG,4 HOURS
     Route: 048
  2. CLONIDINE [Suspect]
     Active Substance: CLONIDINE
     Indication: Analgesic therapy
     Dosage: 0.1 MG, TID
     Route: 065
  3. CLONIDINE [Suspect]
     Active Substance: CLONIDINE
     Dosage: 0.2 MG, TID
     Route: 065
  4. FENTANYL [Suspect]
     Active Substance: FENTANYL
     Indication: Sedation
     Dosage: UNK, INFUSION
     Route: 065
  5. FENTANYL [Suspect]
     Active Substance: FENTANYL
     Indication: Analgesic therapy
  6. DEXMEDETOMIDINE [Interacting]
     Active Substance: DEXMEDETOMIDINE
     Indication: Sedation
     Dosage: UNK, INFUSION
     Route: 065
  7. DEXMEDETOMIDINE [Interacting]
     Active Substance: DEXMEDETOMIDINE
     Dosage: 1.4 MCG/KG/H
     Route: 065
  8. METOCLOPRAMIDE [Concomitant]
     Active Substance: METOCLOPRAMIDE
     Indication: Intestinal pseudo-obstruction
     Dosage: 10 MG, 6 HOURS
     Route: 042
  9. DOCUSATE [Concomitant]
     Active Substance: DOCUSATE
     Indication: Constipation
     Dosage: UNK
     Route: 065
  10. SENNA [Concomitant]
     Active Substance: SENNA LEAF\SENNOSIDES\SENNOSIDES A AND B
     Indication: Constipation
     Dosage: UNK
     Route: 065
  11. POLYETHYLENE GLYCOL [Concomitant]
     Active Substance: POLYETHYLENE GLYCOL
     Indication: Constipation
     Dosage: UNK
     Route: 065
  12. BISACODYL [Concomitant]
     Active Substance: BISACODYL
     Indication: Constipation
     Dosage: UNK
     Route: 065
  13. NEOSTIGMINE [Interacting]
     Active Substance: NEOSTIGMINE
     Indication: Intestinal pseudo-obstruction
     Dosage: 0.4 MG, 1 HOURS
     Route: 065
  14. PROPOFOL [Concomitant]
     Active Substance: PROPOFOL
     Indication: Analgesic therapy
     Dosage: UNK, INFUSION
     Route: 065
  15. GABAPENTIN [Concomitant]
     Active Substance: GABAPENTIN
     Indication: Analgesic therapy
     Dosage: 100 MG, TID
     Route: 065
  16. ACETAMINOPHEN [Concomitant]
     Active Substance: ACETAMINOPHEN
     Indication: Analgesic therapy
     Dosage: UNK, PRN
     Route: 065

REACTIONS (2)
  - Intestinal pseudo-obstruction [Recovered/Resolved]
  - Off label use [Unknown]
